FAERS Safety Report 4473641-3 (Version None)
Quarter: 2004Q4

REPORT INFORMATION
  Report Type: 
  Country: None (occurrence: None)
  Receive Date: 20041013
  Receipt Date: 20041004
  Transmission Date: 20050328
  Serious: Yes (Life-Threatening, Hospitalization, Disabling, Other)
  Sender: FDA-Public Use
  Company Number: US-MERCK-0410USA00449

PATIENT
  Age: 58 Year
  Sex: Male

DRUGS (4)
  1. LIPITOR [Concomitant]
     Route: 065
  2. ZYRTEC [Concomitant]
     Route: 065
  3. VIOXX [Suspect]
     Indication: ARTHRITIS
     Route: 048
     Dates: end: 20030101
  4. VIOXX [Suspect]
     Route: 048
     Dates: start: 20030101, end: 20040901

REACTIONS (3)
  - CARDIAC FLUTTER [None]
  - CEREBROVASCULAR ACCIDENT [None]
  - CHEST PAIN [None]
